FAERS Safety Report 13226040 (Version 1)
Quarter: 2017Q1

REPORT INFORMATION
  Report Type: Spontaneous
  Country: US (occurrence: US)
  Receive Date: 20170211
  Receipt Date: 20170211
  Transmission Date: 20170428
  Serious: Yes (Disabling)
  Sender: FDA-Public Use
  Company Number: None

PATIENT
  Age: 68 Year
  Sex: Female
  Weight: 119.2 kg

DRUGS (11)
  1. MYRBETRIQ [Concomitant]
     Active Substance: MIRABEGRON
  2. LOW DOSE ASA [Concomitant]
  3. SIMVASTATIN. [Concomitant]
     Active Substance: SIMVASTATIN
  4. WARFARIN [Concomitant]
     Active Substance: WARFARIN
  5. DULOXETINE HYDROCHLORIDE. [Suspect]
     Active Substance: DULOXETINE HYDROCHLORIDE
     Indication: FIBROMYALGIA
     Dosage: ?          QUANTITY:1 CAPSULE(S);?
     Route: 048
  6. ATENOLOL. [Concomitant]
     Active Substance: ATENOLOL
  7. FUROSEMIDE. [Concomitant]
     Active Substance: FUROSEMIDE
  8. ALLOPURINOL. [Concomitant]
     Active Substance: ALLOPURINOL
  9. OMEPRAZOLE. [Concomitant]
     Active Substance: OMEPRAZOLE
  10. LEVOTHYROXINE. [Concomitant]
     Active Substance: LEVOTHYROXINE
  11. MULTIVIT [Concomitant]
     Active Substance: VITAMINS

REACTIONS (5)
  - Headache [None]
  - Feeling jittery [None]
  - Anxiety [None]
  - Hyperhidrosis [None]
  - Insomnia [None]
